FAERS Safety Report 24074907 (Version 1)
Quarter: 2024Q3

REPORT INFORMATION
  Report Type: Spontaneous
  Country: US (occurrence: US)
  Receive Date: 20240710
  Receipt Date: 20240710
  Transmission Date: 20241017
  Serious: Yes (Death)
  Sender: AMGEN
  Company Number: US-AMGEN-USASP2024133484

PATIENT
  Age: 62 Year
  Sex: Female

DRUGS (6)
  1. INFLIXIMAB [Suspect]
     Active Substance: INFLIXIMAB
     Indication: Immune-mediated enterocolitis
     Dosage: 5 MILLIGRAM/KILOGRAM (2 DOSES)
     Route: 042
  2. PREDNISONE [Suspect]
     Active Substance: PREDNISONE
     Indication: Immune-mediated enterocolitis
     Dosage: 60 MILLIGRAM, QD
     Route: 048
  3. MEDROL [Concomitant]
     Active Substance: METHYLPREDNISOLONE
     Indication: Immune-mediated enterocolitis
     Dosage: 24 MILLIGRAM, QD (SIX 4 MG TABLETS) (INITIAL DOSE)
     Route: 065
  4. MEDROL [Concomitant]
     Active Substance: METHYLPREDNISOLONE
     Dosage: UNK (WITH A DAILY TAPER OF 4 MG/D)
     Route: 065
  5. IPILIMUMAB;NIVOLUMAB [Concomitant]
     Indication: Metastatic malignant melanoma
     Dosage: UNK ( 4 DOSES)
     Route: 065
  6. IPILIMUMAB;NIVOLUMAB [Concomitant]
     Dosage: UNK (ADDITIONAL 5 DOSES)
     Route: 065

REACTIONS (3)
  - Metastatic malignant melanoma [Fatal]
  - Drug effective for unapproved indication [Unknown]
  - Off label use [Unknown]
